FAERS Safety Report 8173453-3 (Version None)
Quarter: 2012Q1

REPORT INFORMATION
  Report Type: 
  Country: None (occurrence: None)
  Receive Date: 20120229
  Receipt Date: 20120222
  Transmission Date: 20120608
  Serious: No
  Sender: FDA-Public Use
  Company Number: JP-SANOFI-AVENTIS-2011SA067718

PATIENT

DRUGS (3)
  1. GIMERACIL/OTERACIL POTASSIUM/TEGAFUR [Suspect]
     Indication: GASTRIC CANCER
     Route: 065
  2. CISPLATIN [Suspect]
     Indication: GASTRIC CANCER
     Route: 065
  3. DOCETAXEL [Suspect]
     Indication: GASTRIC CANCER
     Route: 065

REACTIONS (5)
  - ENZYME ACTIVITY DECREASED [None]
  - NAUSEA [None]
  - DIARRHOEA [None]
  - DECREASED APPETITE [None]
  - VOMITING [None]
